FAERS Safety Report 19228925 (Version 3)
Quarter: 2021Q2

REPORT INFORMATION
  Report Type: Spontaneous
  Country: CZ (occurrence: CZ)
  Receive Date: 20210506
  Receipt Date: 20210601
  Transmission Date: 20210717
  Serious: Yes (Hospitalization, Other)
  Sender: FDA-Public Use
  Company Number: CZ-BAUSCH-BL-2021-014506

PATIENT
  Age: 47 Year
  Sex: Female
  Weight: 58 kg

DRUGS (14)
  1. DICLOFENAC [Suspect]
     Active Substance: DICLOFENAC
     Indication: CHEST PAIN
     Dosage: 0.33 DAYS
     Route: 048
     Dates: start: 202103
  2. MEDROL [Concomitant]
     Active Substance: METHYLPREDNISOLONE
     Indication: MULTIPLE SCLEROSIS
     Dosage: 16 (UNSPECIFIED UNITS)
  3. LIDOCAINE. [Concomitant]
     Active Substance: LIDOCAINE
     Indication: PREMEDICATION
     Dosage: SPRAY
     Route: 061
  4. CALTRATE WITH VITAMIN D [Concomitant]
     Active Substance: CALCIUM CARBONATE\CHOLECALCIFEROL
     Indication: OSTEOPENIA
     Dosage: 400 (UNSPECIFIED UNITS)
     Route: 048
  5. REBIF [Suspect]
     Active Substance: INTERFERON BETA-1A
     Route: 058
     Dates: start: 2009, end: 2017
  6. APO?GABAPENTIN [Concomitant]
     Active Substance: GABAPENTIN
     Indication: PARAESTHESIA
     Route: 048
     Dates: start: 2017
  7. CALTRATE WITH VITAMIN D [Concomitant]
     Active Substance: CALCIUM CARBONATE\CHOLECALCIFEROL
     Route: 048
     Dates: start: 2010
  8. ZOLADEX [Concomitant]
     Active Substance: GOSERELIN ACETATE
     Indication: PRODUCT USED FOR UNKNOWN INDICATION
     Dosage: 3.6 (UNSPECIFIED UNITS)
  9. LETROZOLE. [Concomitant]
     Active Substance: LETROZOLE
     Indication: PRODUCT USED FOR UNKNOWN INDICATION
     Dosage: 2.5 (UNSPECIFIED UNITS)
  10. REBIF [Suspect]
     Active Substance: INTERFERON BETA-1A
     Indication: RELAPSING-REMITTING MULTIPLE SCLEROSIS
     Dosage: STARTED ON AN UNKNOWN DATE AND DISCONTINUED ON AN UNKNOWN DATE
     Route: 058
  11. REBIF [Suspect]
     Active Substance: INTERFERON BETA-1A
     Dosage: 44 MICROGRAM 0.33 WEEKS
     Route: 058
     Dates: start: 201802, end: 20210305
  12. MAGNOSOLV [Concomitant]
     Active Substance: MAGNESIUM CARBONATE\MAGNESIUM OXIDE
     Indication: MUSCLE SPASMS
     Route: 048
     Dates: start: 2007
  13. ITAKEM [Concomitant]
     Indication: DEPRESSION
     Route: 048
     Dates: start: 2018
  14. MEDROL [Concomitant]
     Active Substance: METHYLPREDNISOLONE
     Route: 048
     Dates: start: 201001

REACTIONS (26)
  - Aortic valve incompetence [Unknown]
  - Thrombotic microangiopathy [Recovering/Resolving]
  - Anaemia [Recovering/Resolving]
  - Liver disorder [Unknown]
  - Ocular hyperaemia [Unknown]
  - Decreased appetite [Unknown]
  - Mucinous breast carcinoma [Unknown]
  - Pancreatic disorder [Unknown]
  - Non-cardiac chest pain [Unknown]
  - Thrombocytopenia [Recovering/Resolving]
  - Pleural effusion [Unknown]
  - Hiatus hernia [Unknown]
  - Herpes zoster [Unknown]
  - Nausea [Unknown]
  - Dyspnoea [Recovering/Resolving]
  - Acute kidney injury [Recovering/Resolving]
  - Lymphopenia [Unknown]
  - Influenza like illness [Unknown]
  - Gastritis erosive [Recovering/Resolving]
  - Hypertension [Recovering/Resolving]
  - Poor quality sleep [Unknown]
  - Tachycardia [Unknown]
  - Melaena [Recovered/Resolved]
  - Eye irritation [Unknown]
  - Lacrimation increased [Unknown]
  - Dizziness [Unknown]

NARRATIVE: CASE EVENT DATE: 2012
